FAERS Safety Report 7764596-4 (Version None)
Quarter: 2011Q3

REPORT INFORMATION
  Report Type: 
  Country: None (occurrence: None)
  Receive Date: 20110921
  Receipt Date: 20110906
  Transmission Date: 20111222
  Serious: Yes (Other)
  Sender: FDA-Public Use
  Company Number: US-ELI_LILLY_AND_COMPANY-US201109001818

PATIENT
  Sex: Male

DRUGS (1)
  1. XIGRIS [Suspect]
     Indication: SEPSIS
     Dosage: UNK, UNKNOWN
     Route: 065

REACTIONS (2)
  - PULMONARY HAEMORRHAGE [None]
  - ENDOCARDITIS [None]
